FAERS Safety Report 9749233 (Version 2)
Quarter: 2014Q1

REPORT INFORMATION
  Report Type: Spontaneous
  Country: US (occurrence: US)
  Receive Date: 20131212
  Receipt Date: 20140312
  Transmission Date: 20141002
  Serious: No
  Sender: FDA-Public Use
  Company Number: US-INCYTE CORPORATION-2013IN002646

PATIENT
  Age: 74 Year
  Sex: Female

DRUGS (16)
  1. JAKAFI [Suspect]
     Indication: MYELOFIBROSIS
     Dosage: 5 MG, BID
     Route: 048
     Dates: start: 20131010, end: 201401
  2. JAKAFI [Suspect]
     Dosage: 10 MG, BID
     Route: 048
     Dates: start: 20140114
  3. ASPIRIN [Concomitant]
  4. LASIX                              /00032601/ [Concomitant]
  5. LIPITOR [Concomitant]
  6. OMEGA-3                            /01866101/ [Concomitant]
  7. MAGNESIUM OXIDE [Concomitant]
  8. MULTIVITAMIN                       /00097801/ [Concomitant]
  9. VITAMIN D3 [Concomitant]
  10. LORTAB                             /00607101/ [Concomitant]
  11. ZEMPLAR [Concomitant]
  12. CO Q 10                            /00517201/ [Concomitant]
  13. IRON [Concomitant]
  14. PAXIL                              /00830802/ [Concomitant]
  15. CALCITONIN [Concomitant]
  16. LYRICA [Concomitant]

REACTIONS (2)
  - Jaw disorder [Recovered/Resolved]
  - Bone disorder [Recovered/Resolved]
